FAERS Safety Report 9691668 (Version 1)
Quarter: 2013Q4

REPORT INFORMATION
  Report Type: Spontaneous
  Country: US (occurrence: US)
  Receive Date: 20131115
  Receipt Date: 20131115
  Transmission Date: 20140711
  Serious: No
  Sender: FDA-Public Use
  Company Number: US-009507513-1311USA005450

PATIENT
  Sex: Male

DRUGS (9)
  1. SINGULAIR [Suspect]
     Indication: RHINITIS
     Route: 065
  2. ALBUTEROL [Concomitant]
  3. PULMICORT [Concomitant]
  4. ZYRTEC [Concomitant]
  5. DIASTAT (DIAZEPAM) [Concomitant]
  6. HYDROCORTISONE [Concomitant]
  7. MIRALAX [Concomitant]
  8. NASACORT [Concomitant]
  9. [THERAPY UNSPECIFIED] [Concomitant]

REACTIONS (3)
  - Chest discomfort [Unknown]
  - Erythema [Unknown]
  - Wheezing [Unknown]
